FAERS Safety Report 5573821-X (Version None)
Quarter: 2007Q4

REPORT INFORMATION
  Report Type: 
  Country: None (occurrence: None)
  Receive Date: 20071226
  Receipt Date: 20071219
  Transmission Date: 20080405
  Serious: Yes (Other)
  Sender: FDA-Public Use
  Company Number: US-GENENTECH-253090

PATIENT
  Sex: Male

DRUGS (3)
  1. BEVACIZUMAB [Suspect]
     Indication: MACULAR DEGENERATION
     Dosage: UNK, UNK
     Route: 031
     Dates: start: 20070801
  2. VISUDYNE [Suspect]
     Indication: MACULAR DEGENERATION
     Route: 031
     Dates: start: 20070611
  3. DEXAMETHASONE TAB [Suspect]
     Indication: MACULAR DEGENERATION
     Route: 031
     Dates: start: 20070611

REACTIONS (1)
  - IRITIS [None]
